FAERS Safety Report 4764422-1 (Version None)
Quarter: 2005Q3

REPORT INFORMATION
  Report Type: 
  Country: None (occurrence: None)
  Receive Date: 20050906
  Receipt Date: 20050823
  Transmission Date: 20060218
  Serious: Yes (Other)
  Sender: FDA-Public Use
  Company Number: 2005119151

PATIENT
  Age: 70 Year
  Sex: Male
  Weight: 114.76 kg

DRUGS (12)
  1. NEURONTIN [Suspect]
     Indication: HERPES ZOSTER
     Dosage: DAILY
     Dates: start: 20050101
  2. ARICEPT [Suspect]
     Indication: DEMENTIA
     Dosage: 10 MG (10 MG, 1 IN 1 D)
     Dates: start: 20050101
  3. NPH INSULIN [Concomitant]
  4. FUROSEMIDE [Concomitant]
  5. DITROPAN [Concomitant]
  6. VASOTEC [Concomitant]
  7. LOVASTATIN [Concomitant]
  8. PAXIL [Concomitant]
  9. PRAZOSIN GITS [Concomitant]
  10. MULTIVITAMIN [Concomitant]
  11. ASPIRIN [Concomitant]
  12. INSULIN, REGULAR (INSULIN) [Concomitant]

REACTIONS (13)
  - APATHY [None]
  - ASTHENIA [None]
  - BLOOD GLUCOSE DECREASED [None]
  - EYE DISORDER [None]
  - FAECAL INCONTINENCE [None]
  - FATIGUE [None]
  - HERPES ZOSTER [None]
  - INCORRECT DOSE ADMINISTERED [None]
  - OVERDOSE [None]
  - RETINAL DISORDER [None]
  - SEBORRHOEIC DERMATITIS [None]
  - VASCULAR OCCLUSION [None]
  - VISUAL DISTURBANCE [None]
